FAERS Safety Report 24572939 (Version 2)
Quarter: 2024Q4

REPORT INFORMATION
  Report Type: Spontaneous
  Country: US (occurrence: US)
  Receive Date: 20241101
  Receipt Date: 20241107
  Transmission Date: 20250115
  Serious: No
  Sender: AMGEN
  Company Number: US-AMGEN-USASP2024215323

PATIENT
  Sex: Female

DRUGS (1)
  1. PROCRIT [Suspect]
     Active Substance: ERYTHROPOIETIN
     Indication: Small cell lung cancer
     Dosage: UNK (40,000/20,000 UNITS/ PROCRIT VIAL 40000.00 UNITS/ML)
     Route: 065

REACTIONS (5)
  - Fatigue [Unknown]
  - Illness [Unknown]
  - Haemoglobin abnormal [Recovering/Resolving]
  - Thyroid disorder [Unknown]
  - Blood pressure measurement [Unknown]

NARRATIVE: CASE EVENT DATE: 20240101
